FAERS Safety Report 4556144-7 (Version None)
Quarter: 2005Q1

REPORT INFORMATION
  Report Type: 
  Country: None (occurrence: None)
  Receive Date: 20050114
  Receipt Date: 20050105
  Transmission Date: 20050727
  Serious: Yes (Hospitalization)
  Sender: FDA-Public Use
  Company Number: 2005006536

PATIENT
  Age: 59 Year
  Sex: Female
  Weight: 57 kg

DRUGS (6)
  1. EPIRUBICIN [Suspect]
     Indication: BREAST CANCER
     Dosage: 170 MG (CYCLICAL), INTRAVENOUS
     Route: 042
     Dates: start: 20040726, end: 20040726
  2. CYCLOPHOSPHAMIDE [Suspect]
     Indication: BREAST CANCER
     Dosage: 800 MG (CYCLICAL), INTRAVENOUS
     Route: 042
     Dates: start: 20040726, end: 20040726
  3. FLUOROURACIL [Suspect]
     Indication: ILL-DEFINED DISORDER
     Dosage: 800 MG (CYCLICAL), INTRAVENOUS
     Route: 042
     Dates: start: 20040726, end: 20040726
  4. DEXRAZOXANE [Suspect]
     Indication: ILL-DEFINED DISORDER
     Dosage: 1700 MG (CYCLICAL), INTRAVENOUS
     Route: 042
     Dates: start: 20040726, end: 20040726
  5. FILGRASTIM (FILGRASTIM) [Suspect]
     Indication: AGRANULOCYTOSIS
     Dosage: SUBCUTANEOUS
     Route: 058
  6. ZOLEDRONIC ACID (ZOLEDRONIC ACID) [Suspect]
     Indication: ILL-DEFINED DISORDER
     Dosage: INTRAVENOUS
     Route: 042
     Dates: end: 20040821

REACTIONS (12)
  - ACIDOSIS HYPERCHLORAEMIC [None]
  - AGRANULOCYTOSIS [None]
  - DEHYDRATION [None]
  - GLYCOSURIA [None]
  - HYPERCALCAEMIA [None]
  - HYPOKALAEMIA [None]
  - HYPOPHOSPHATAEMIA [None]
  - METABOLIC ACIDOSIS [None]
  - OSTEOLYSIS [None]
  - PROTEINURIA [None]
  - RENAL FAILURE [None]
  - RENAL TUBULAR DISORDER [None]
